FAERS Safety Report 10227905 (Version 2)
Quarter: 2014Q3

REPORT INFORMATION
  Report Type: Spontaneous
  Country: JP (occurrence: None)
  Receive Date: 20140606
  Receipt Date: 20140806
  Transmission Date: 20150326
  Serious: Yes (Other)
  Sender: FDA-Public Use
  Company Number: 2014-19670

PATIENT
  Age: 93 Year
  Sex: Female
  Weight: 47 kg

DRUGS (1)
  1. EYLEA [Suspect]
     Active Substance: AFLIBERCEPT
     Indication: AGE-RELATED MACULAR DEGENERATION
     Route: 031
     Dates: start: 20140110, end: 20140314

REACTIONS (1)
  - VIth nerve paralysis [None]

NARRATIVE: CASE EVENT DATE: 20140316
